FAERS Safety Report 8059097-2 (Version None)
Quarter: 2012Q1

REPORT INFORMATION
  Report Type: 
  Country: None (occurrence: None)
  Receive Date: 20120120
  Receipt Date: 20120117
  Transmission Date: 20120608
  Serious: Yes (Hospitalization)
  Sender: FDA-Public Use
  Company Number: BR-ABBOTT-11P-020-0721997-00

PATIENT
  Sex: Female
  Weight: 45 kg

DRUGS (5)
  1. UNKNOWN MEDICINE [Concomitant]
     Indication: INFLAMMATION
     Dosage: 6 TABLETS IN ONE DAY ONCE PER WEEK
     Route: 048
  2. LOSARTAN POTASSIUM [Concomitant]
     Indication: HYPERTENSION
     Route: 048
  3. UNKNOWN DRUG [Concomitant]
     Indication: DIABETES MELLITUS
     Route: 048
  4. BECLAMIDE [Concomitant]
     Indication: DIABETES MELLITUS
     Dosage: 0.5 EVERY 24 HOURS
     Route: 048
  5. HUMIRA [Suspect]
     Indication: RHEUMATOID ARTHRITIS
     Route: 058
     Dates: start: 20100101

REACTIONS (9)
  - APPLICATION SITE PAIN [None]
  - WEIGHT DECREASED [None]
  - BLOOD TEST ABNORMAL [None]
  - ANAEMIA [None]
  - DRUG INEFFECTIVE [None]
  - ASTHENIA [None]
  - WEIGHT INCREASED [None]
  - PAIN IN EXTREMITY [None]
  - DECREASED APPETITE [None]
